FAERS Safety Report 6472244-9 (Version None)
Quarter: 2009Q4

REPORT INFORMATION
  Report Type: 
  Country: None (occurrence: None)
  Receive Date: 20091203
  Receipt Date: 20081204
  Transmission Date: 20100525
  Serious: No
  Sender: FDA-Public Use
  Company Number: PR-AMGEN-KDL322264

PATIENT
  Sex: Female

DRUGS (2)
  1. ENBREL [Suspect]
     Indication: RHEUMATOID ARTHRITIS
     Route: 058
     Dates: start: 20050826
  2. METHOTREXATE [Concomitant]
     Dates: start: 20070801

REACTIONS (2)
  - DECREASED APPETITE [None]
  - RHEUMATOID ARTHRITIS [None]
